FAERS Safety Report 6590545-0 (Version None)
Quarter: 2010Q1

REPORT INFORMATION
  Report Type: 
  Country: None (occurrence: None)
  Receive Date: 20100219
  Receipt Date: 20100208
  Transmission Date: 20100710
  Serious: Yes (Other)
  Sender: FDA-Public Use
  Company Number: GB-PFIZER INC-2006121295

PATIENT
  Age: 55 Year
  Sex: Female
  Weight: 65 kg

DRUGS (2)
  1. VFEND [Suspect]
     Route: 048
     Dates: start: 20041201, end: 20050601
  2. FUROSEMIDE [Concomitant]

REACTIONS (1)
  - PSEUDOPORPHYRIA [None]
